FAERS Safety Report 6453440-3 (Version None)
Quarter: 2009Q4

REPORT INFORMATION
  Report Type: 
  Country: None (occurrence: None)
  Receive Date: 20091124
  Receipt Date: 20091118
  Transmission Date: 20100525
  Serious: Yes (Life-Threatening, Hospitalization)
  Sender: FDA-Public Use
  Company Number: GB-ELI_LILLY_AND_COMPANY-GB200910002267

PATIENT
  Age: 57 Year
  Sex: Male

DRUGS (8)
  1. BYETTA [Suspect]
     Indication: DIABETES MELLITUS
     Dosage: UNK, UNKNOWN
     Route: 058
     Dates: start: 20080601, end: 20090901
  2. FRUSEMIDE [Concomitant]
     Route: 048
     Dates: end: 20090901
  3. SIMVASTATIN [Concomitant]
     Route: 048
  4. METFORMIN HCL [Concomitant]
     Dosage: 850
     Route: 048
  5. IRBESARTAN [Concomitant]
     Dosage: 300
     Route: 048
  6. ATENOLOL [Concomitant]
     Dosage: 50
  7. AMLODIPINE [Concomitant]
     Dosage: 10 MG, DAILY (1/D)
  8. ASPIRIN [Concomitant]
     Dosage: 75 MG, DAILY (1/D)

REACTIONS (1)
  - RENAL FAILURE ACUTE [None]
